FAERS Safety Report 7560493-8 (Version None)
Quarter: 2011Q2

REPORT INFORMATION
  Report Type: 
  Country: None (occurrence: None)
  Receive Date: 20110621
  Receipt Date: 20110616
  Transmission Date: 20111010
  Serious: Yes (Hospitalization)
  Sender: FDA-Public Use
  Company Number: JP-MERCK-1106USA02234

PATIENT
  Age: 70 Year
  Sex: Male

DRUGS (4)
  1. NELBIS [Concomitant]
     Route: 065
  2. GLUFAST [Concomitant]
     Route: 065
  3. CRESTOR [Concomitant]
     Route: 065
  4. JANUVIA [Suspect]
     Indication: TYPE 2 DIABETES MELLITUS
     Route: 048
     Dates: start: 20101210, end: 20110615

REACTIONS (1)
  - RENAL IMPAIRMENT [None]
